FAERS Safety Report 19523454 (Version 1)
Quarter: 2021Q3

REPORT INFORMATION
  Report Type: Report from Study
  Country: FR (occurrence: FR)
  Receive Date: 20210712
  Receipt Date: 20210712
  Transmission Date: 20211014
  Serious: Yes (Death, Hospitalization, Other)
  Sender: FDA-Public Use
  Company Number: FR-TAKEDA-2021TUS042906

PATIENT
  Age: 10 Year
  Sex: Male

DRUGS (2)
  1. IDURSULFASE [Suspect]
     Active Substance: IDURSULFASE
     Dosage: 0.80 MILLIGRAM/KILOGRAM
     Route: 042
     Dates: start: 20080314
  2. IDURSULFASE [Suspect]
     Active Substance: IDURSULFASE
     Indication: MUCOPOLYSACCHARIDOSIS II
     Dosage: 0.67 MILLIGRAM, 1/WEEK
     Route: 042
     Dates: start: 20070301

REACTIONS (2)
  - Dyspnoea [Recovered/Resolved with Sequelae]
  - Cardiopulmonary failure [Fatal]

NARRATIVE: CASE EVENT DATE: 20141010
